FAERS Safety Report 9378152 (Version 2)
Quarter: 2013Q3

REPORT INFORMATION
  Report Type: Spontaneous
  Country: GB (occurrence: GB)
  Receive Date: 20130701
  Receipt Date: 20130911
  Transmission Date: 20140515
  Serious: Yes (Other)
  Sender: FDA-Public Use
  Company Number: GB-GLAXOSMITHKLINE-B0902597A

PATIENT
  Age: 49 Year
  Sex: Male

DRUGS (4)
  1. AVANDIA [Suspect]
     Indication: TYPE 2 DIABETES MELLITUS
     Route: 048
     Dates: start: 20010514, end: 20071231
  2. METFORMIN [Concomitant]
     Indication: TYPE 2 DIABETES MELLITUS
  3. TOLBUTAMIDE [Concomitant]
     Indication: TYPE 2 DIABETES MELLITUS
     Dates: end: 20000218
  4. GLICLAZIDE [Concomitant]
     Indication: TYPE 2 DIABETES MELLITUS
     Dates: start: 20000218

REACTIONS (3)
  - Transient ischaemic attack [Unknown]
  - Transient ischaemic attack [Unknown]
  - Transient ischaemic attack [Unknown]
